FAERS Safety Report 4324530-6 (Version None)
Quarter: 2004Q1

REPORT INFORMATION
  Report Type: 
  Country: None (occurrence: None)
  Receive Date: 20040323
  Receipt Date: 20040308
  Transmission Date: 20041129
  Serious: Yes (Other)
  Sender: FDA-Public Use
  Company Number: 2004-DE-01286UP

PATIENT
  Sex: Female

DRUGS (1)
  1. MIRAPEXIN (PRAMIPEXOLE DIHYDROCHLORIDE) (TA) (PRAMIPEXOLE) [Suspect]
     Dosage: PO
     Route: 048

REACTIONS (2)
  - DEEP VEIN THROMBOSIS [None]
  - NAUSEA [None]
